FAERS Safety Report 4676373-1 (Version None)
Quarter: 2005Q2

REPORT INFORMATION
  Report Type: 
  Country: None (occurrence: None)
  Receive Date: 20050527
  Receipt Date: 20050228
  Transmission Date: 20051028
  Serious: Yes (Hospitalization)
  Sender: FDA-Public Use
  Company Number: 05-01-0123

PATIENT
  Age: 44 Year
  Sex: Female
  Weight: 74.5 kg

DRUGS (2)
  1. WELLBUTRIN XL [Suspect]
     Indication: DEPRESSION
     Dosage: 300MG PER DAY
     Route: 048
     Dates: end: 20050127
  2. CLOZAPINE [Suspect]
     Indication: SCHIZOAFFECTIVE DISORDER
     Dosage: 400MG PER DAY
     Route: 048
     Dates: start: 20000501

REACTIONS (2)
  - AMNESIA [None]
  - GRAND MAL CONVULSION [None]
